FAERS Safety Report 8134577-X (Version None)
Quarter: 2012Q1

REPORT INFORMATION
  Report Type: 
  Country: None (occurrence: None)
  Receive Date: 20120214
  Receipt Date: 20120203
  Transmission Date: 20120608
  Serious: Yes (Other)
  Sender: FDA-Public Use
  Company Number: GB-BRISTOL-MYERS SQUIBB COMPANY-16371007

PATIENT
  Age: 66 Year
  Sex: Male
  Weight: 99 kg

DRUGS (17)
  1. LANSOPRAZOLE [Concomitant]
     Dates: start: 19980101
  2. ACETAMINOPHEN AND CODEINE PHOSPHATE [Concomitant]
  3. SLOW-K [Concomitant]
     Dosage: 2 TABS
     Dates: start: 20111121
  4. DOXYCYCLINE [Concomitant]
     Route: 048
     Dates: start: 20111115
  5. CISPLATIN [Suspect]
     Indication: OESOPHAGEAL CARCINOMA
     Dosage: RECENT DOSE 02JAN2012
     Route: 042
     Dates: start: 20111031
  6. LEVOTHYROXINE SODIUM [Concomitant]
     Dates: start: 20020101
  7. SUCRALFATE [Concomitant]
     Route: 048
     Dates: start: 20111206
  8. TEMAZEPAM [Concomitant]
     Route: 048
     Dates: start: 20111213
  9. CAPECITABINE [Suspect]
     Indication: OESOPHAGEAL CARCINOMA
     Dosage: RECENT DOSE 18JAN2012 TABS
     Route: 048
     Dates: start: 20111031
  10. BENDROFLUAZIDE [Concomitant]
     Dates: start: 20020101
  11. METOCLOPRAMIDE [Concomitant]
     Dosage: 1 DF:10-20MG
     Route: 048
     Dates: start: 20111031
  12. CETUXIMAB [Suspect]
     Indication: OESOPHAGEAL CARCINOMA
     Dosage: RECENT DOSE 16JAN2012 CETUXIMAB IV INFUSION
     Route: 042
     Dates: start: 20111031
  13. ONDANSETRON [Concomitant]
     Route: 048
     Dates: start: 20111031, end: 20120104
  14. DEXAMETHASONE [Concomitant]
     Route: 048
     Dates: start: 20111031, end: 20120104
  15. DIFFLAM [Concomitant]
     Route: 048
     Dates: start: 20111228
  16. PHOSPHATE-SANDOZ [Concomitant]
     Dosage: 2 TABS
     Route: 048
     Dates: start: 20120103
  17. PYRIDOXINE HCL [Concomitant]
     Route: 048
     Dates: start: 20111206

REACTIONS (2)
  - PULMONARY EMBOLISM [None]
  - DYSPNOEA [None]
